FAERS Safety Report 6274822-9 (Version None)
Quarter: 2009Q3

REPORT INFORMATION
  Report Type: 
  Country: None (occurrence: None)
  Receive Date: 20090721
  Receipt Date: 20090713
  Transmission Date: 20100115
  Serious: Yes (Hospitalization)
  Sender: FDA-Public Use
  Company Number: US-SP-2009-01702

PATIENT
  Age: 63 Year
  Sex: Female

DRUGS (8)
  1. THERACYS [Suspect]
     Indication: BLADDER CANCER
     Route: 043
     Dates: start: 20081113
  2. THERACYS [Suspect]
     Route: 043
     Dates: start: 20081113
  3. THERACYS [Suspect]
     Route: 043
     Dates: start: 20081113
  4. THERACYS [Suspect]
     Route: 043
     Dates: start: 20081113
  5. BCG  THERAPEUTICS [Suspect]
     Indication: BLADDER CANCER
     Dates: start: 20081009, end: 20081106
  6. BCG  THERAPEUTICS [Suspect]
     Dates: start: 20081009, end: 20081106
  7. BCG  THERAPEUTICS [Suspect]
     Dates: start: 20081009, end: 20081106
  8. BCG  THERAPEUTICS [Suspect]
     Dates: start: 20081009, end: 20081106

REACTIONS (7)
  - ARTHRALGIA [None]
  - BACK PAIN [None]
  - BLADDER CANCER RECURRENT [None]
  - COUGH [None]
  - CYSTITIS NONINFECTIVE [None]
  - LOCALISED OEDEMA [None]
  - OEDEMA PERIPHERAL [None]
